FAERS Safety Report 13612470 (Version 2)
Quarter: 2017Q2

REPORT INFORMATION
  Report Type: Report from Study
  Country: TW (occurrence: TW)
  Receive Date: 20170605
  Receipt Date: 20170618
  Transmission Date: 20170830
  Serious: Yes (Hospitalization)
  Sender: FDA-Public Use
  Company Number: TW-ELI_LILLY_AND_COMPANY-TW201706000144

PATIENT
  Age: 60 Year
  Sex: Male
  Weight: 68 kg

DRUGS (8)
  1. EPIRUBICIN [Suspect]
     Active Substance: EPIRUBICIN
     Indication: LIP AND/OR ORAL CAVITY CANCER
     Dosage: .05 G, WEEKLY (1/W)
     Route: 065
     Dates: start: 20170302
  2. M.T.X [Suspect]
     Active Substance: METHOTREXATE
     Indication: LIP AND/OR ORAL CAVITY CANCER
     Dosage: 50 MG, WEEKLY (1/W)
     Route: 065
     Dates: start: 20170302
  3. CETUXIMAB. [Suspect]
     Active Substance: CETUXIMAB
     Indication: LIP AND/OR ORAL CAVITY CANCER
     Dosage: 250 MG/M2, WEEKLY (1/W)
     Route: 042
     Dates: start: 20170209, end: 20170511
  4. CISPLATIN. [Suspect]
     Active Substance: CISPLATIN
     Indication: LIP AND/OR ORAL CAVITY CANCER
     Dosage: 20 MG, UNKNOWN
     Route: 065
  5. MITOMYCIN C [Suspect]
     Active Substance: MITOMYCIN
     Indication: LIP AND/OR ORAL CAVITY CANCER
     Dosage: 8 MG, UNKNOWN
     Route: 065
  6. BLEOCIN                            /00183901/ [Suspect]
     Active Substance: BLEOMYCIN SULFATE
     Indication: LIP AND/OR ORAL CAVITY CANCER
     Dosage: 20 MG, UNKNOWN
     Route: 065
  7. VINCRISTINE [Suspect]
     Active Substance: VINCRISTINE
     Indication: LIP AND/OR ORAL CAVITY CANCER
     Dosage: 2 MG, UNKNOWN
     Route: 065
  8. 5 FU [Suspect]
     Active Substance: FLUOROURACIL
     Indication: LIP AND/OR ORAL CAVITY CANCER
     Dosage: 2000 MG, UNKNOWN
     Route: 065

REACTIONS (3)
  - Off label use [Unknown]
  - Pyrexia [Recovered/Resolved]
  - White blood cell count decreased [Recovered/Resolved]

NARRATIVE: CASE EVENT DATE: 20170511
